FAERS Safety Report 8759649 (Version 2)
Quarter: 2013Q4

REPORT INFORMATION
  Report Type: Spontaneous
  Country: IT (occurrence: IT)
  Receive Date: 20120829
  Receipt Date: 20131106
  Transmission Date: 20140711
  Serious: Yes (Hospitalization)
  Sender: FDA-Public Use
  Company Number: IT-MERCK-1208ITA010161

PATIENT
  Age: 80 Year
  Sex: Female

DRUGS (8)
  1. LORTAAN 100 MG COMPRESSE RIVESTITE CON FILM [Suspect]
     Indication: HYPERTENSION
     Dosage: 25 MG, QD
     Route: 048
     Dates: start: 20120616, end: 20120709
  2. ZYLORIC [Suspect]
     Indication: HYPERURICAEMIA
     Dosage: 150 MG, QD
     Route: 048
     Dates: start: 20120616, end: 20120709
  3. CARDIOASPIRIN [Suspect]
     Indication: CARDIOMYOPATHY
     Dosage: 100 MG, QD
     Route: 048
     Dates: start: 20120616, end: 20120709
  4. BISOPROLOL [Suspect]
     Dosage: UNK
     Dates: end: 20120709
  5. GLIBOMET [Concomitant]
  6. FOLINA (FOLIC ACID) [Concomitant]
  7. PEPTAZOL [Concomitant]
  8. LASIX (FUROSEMIDE SODIUM) [Concomitant]

REACTIONS (4)
  - Stevens-Johnson syndrome [Unknown]
  - Kounis syndrome [Unknown]
  - Drug hypersensitivity [Unknown]
  - Acute coronary syndrome [Unknown]
